FAERS Safety Report 5213410-X (Version None)
Quarter: 2007Q1

REPORT INFORMATION
  Report Type: 
  Country: None (occurrence: None)
  Receive Date: 20070116
  Receipt Date: 20070109
  Transmission Date: 20070707
  Serious: Yes (Hospitalization, Other)
  Sender: FDA-Public Use
  Company Number: DEWYE653827NOV06

PATIENT
  Age: 70 Year
  Sex: Male

DRUGS (2)
  1. VENLAFAXINE HCL [Suspect]
     Dosage: 50 CAPSULES (OVERDOSE AMOUNT 3750)
     Route: 048
     Dates: start: 20061124, end: 20061124
  2. SEROQUEL [Suspect]
     Dosage: 40 TABLETS (OVERDOSE AMOUNT 4000 MG)
     Route: 048
     Dates: start: 20061124, end: 20061124

REACTIONS (11)
  - BLOOD POTASSIUM DECREASED [None]
  - COMA [None]
  - GASTROINTESTINAL HYPOMOTILITY [None]
  - HYPERNATRAEMIA [None]
  - HYPOTENSION [None]
  - MULTIPLE DRUG OVERDOSE INTENTIONAL [None]
  - RESPIRATORY DEPRESSION [None]
  - RESPIRATORY FAILURE [None]
  - SOMNOLENCE [None]
  - SUICIDE ATTEMPT [None]
  - SUPRAVENTRICULAR TACHYCARDIA [None]
